FAERS Safety Report 6923329-1 (Version None)
Quarter: 2010Q3

REPORT INFORMATION
  Report Type: 
  Country: None (occurrence: None)
  Receive Date: 20100813
  Receipt Date: 20100802
  Transmission Date: 20110219
  Serious: Yes (Other)
  Sender: FDA-Public Use
  Company Number: PHHY2010US34999

PATIENT
  Sex: Female

DRUGS (4)
  1. ZOMETA [Suspect]
     Dosage: UNK
     Route: 042
     Dates: start: 20090301
  2. LISINOPRIL [Concomitant]
  3. FENTANYL [Concomitant]
     Route: 062
  4. VITAMINS [Concomitant]

REACTIONS (6)
  - BLOOD BLISTER [None]
  - HYPOAESTHESIA [None]
  - OSTEONECROSIS OF JAW [None]
  - PAIN [None]
  - TOOTH EXTRACTION [None]
  - TREMOR [None]
